FAERS Safety Report 22354666 (Version 1)
Quarter: 2023Q2

REPORT INFORMATION
  Report Type: Spontaneous
  Country: US (occurrence: None)
  Receive Date: 20230522
  Receipt Date: 20230522
  Transmission Date: 20230721
  Serious: Yes (unspecified)
  Sender: FDA-Public Use
  Company Number: None

PATIENT
  Age: 71 Year
  Sex: Female
  Weight: 61.2 kg

DRUGS (1)
  1. PRALUENT [Suspect]
     Active Substance: ALIROCUMAB
     Indication: Hyperlipidaemia
     Dosage: OTHER FREQUENCY : EVERY 14 DAYS;?
     Route: 058
     Dates: start: 20230303, end: 20230515

REACTIONS (7)
  - Skin discolouration [None]
  - Pruritus [None]
  - Pruritus [None]
  - Oral pruritus [None]
  - Heart rate increased [None]
  - Palpitations [None]
  - Lichen planus [None]

NARRATIVE: CASE EVENT DATE: 20230505
